FAERS Safety Report 7207284-5 (Version None)
Quarter: 2010Q4

REPORT INFORMATION
  Report Type: 
  Country: None (occurrence: None)
  Receive Date: 20101230
  Receipt Date: 20101230
  Transmission Date: 20110411
  Serious: Yes (Hospitalization, Other)
  Sender: FDA-Public Use
  Company Number: None

PATIENT
  Age: 41 Year
  Sex: Female
  Weight: 52.1637 kg

DRUGS (1)
  1. ZYPREXA [Suspect]
     Indication: DEPRESSION
     Dates: start: 20101001, end: 20101228

REACTIONS (2)
  - LEGAL PROBLEM [None]
  - PSYCHOTIC DISORDER [None]
